FAERS Safety Report 5412611-5 (Version None)
Quarter: 2007Q3

REPORT INFORMATION
  Report Type: 
  Country: None (occurrence: None)
  Receive Date: 20070813
  Receipt Date: 20070801
  Transmission Date: 20080115
  Serious: Yes (Hospitalization)
  Sender: FDA-Public Use
  Company Number: MX-SANOFI-SYNTHELABO-A01200611045

PATIENT
  Sex: Male
  Weight: 110 kg

DRUGS (2)
  1. UROXATRAL [Suspect]
     Indication: HYPERTONIC BLADDER
     Route: 048
     Dates: start: 20000301, end: 20060905
  2. PLACEBO [Suspect]
     Indication: HYPERTONIC BLADDER
     Route: 048
     Dates: start: 20060829, end: 20060905

REACTIONS (1)
  - URINARY RETENTION [None]
